FAERS Safety Report 4527853-0 (Version None)
Quarter: 2004Q4

REPORT INFORMATION
  Report Type: 
  Country: None (occurrence: None)
  Receive Date: 20041123
  Receipt Date: 20040805
  Transmission Date: 20050328
  Serious: Yes (Hospitalization, Other)
  Sender: FDA-Public Use
  Company Number: ATO-04-0737

PATIENT
  Age: 60 Year
  Sex: Female
  Weight: 62.5 kg

DRUGS (7)
  1. TRISENOX [Suspect]
     Indication: MULTIPLE MYELOMA
     Dosage: 16 MG (0.25 MG/KG, QD X 4 DAYS), IVI
     Dates: start: 20040728, end: 20040731
  2. MELPHALAN [Suspect]
     Indication: MULTIPLE MYELOMA
     Dosage: 6 MG (6 MG, QD X 4 DAYS), ORAL
     Route: 048
     Dates: start: 20040728, end: 20040731
  3. ASCORBIC ACID [Suspect]
     Indication: MULTIPLE MYELOMA
     Dates: start: 20040712, end: 20040712
  4. OXYCONTIN [Concomitant]
  5. OXYIR [Concomitant]
  6. LORAZEPAM [Concomitant]
  7. POTASSIUM CHLORIDE [Concomitant]

REACTIONS (8)
  - ANAEMIA [None]
  - CHEILITIS [None]
  - EPISTAXIS [None]
  - LOOSE STOOLS [None]
  - NEUTROPENIA [None]
  - SEPSIS [None]
  - STOMATITIS [None]
  - THROMBOCYTOPENIA [None]
